FAERS Safety Report 15325826 (Version 1)
Quarter: 2018Q3

REPORT INFORMATION
  Report Type: Spontaneous
  Country: US (occurrence: US)
  Receive Date: 20180822
  Receipt Date: 20180822
  Transmission Date: 20181010
  Serious: Yes (Disabling)
  Sender: FDA-Public Use
  Company Number: None

PATIENT
  Age: 68 Year
  Sex: Female
  Weight: 54 kg

DRUGS (7)
  1. SIMVASTATIN. [Concomitant]
     Active Substance: SIMVASTATIN
  2. IBRANCE [Suspect]
     Active Substance: PALBOCICLIB
     Indication: BREAST CANCER
     Route: 048
     Dates: start: 20141115, end: 20161125
  3. IBRANCE [Suspect]
     Active Substance: PALBOCICLIB
  4. FEMARA [Concomitant]
     Active Substance: LETROZOLE
  5. MAGNESIUM [Concomitant]
     Active Substance: MAGNESIUM
  6. DICLOFENAC NA ER [Concomitant]
  7. BIOTIN [Concomitant]
     Active Substance: BIOTIN

REACTIONS (2)
  - Pulmonary embolism [None]
  - Dyspnoea [None]

NARRATIVE: CASE EVENT DATE: 20170314
